FAERS Safety Report 24054442 (Version 1)
Quarter: 2024Q3

REPORT INFORMATION
  Report Type: Spontaneous
  Country: US (occurrence: US)
  Receive Date: 20240705
  Receipt Date: 20240705
  Transmission Date: 20241017
  Serious: Yes (Life-Threatening, Hospitalization, Other)
  Sender: RANBAXY
  Company Number: US-SUN PHARMACEUTICAL INDUSTRIES LTD-2024R1-454653

PATIENT
  Age: 26 Year
  Sex: Female

DRUGS (2)
  1. MINOXIDIL [Suspect]
     Active Substance: MINOXIDIL
     Indication: Hypertension
     Dosage: 2.5 MILLIGRAM, DAILY
     Route: 065
  2. MINOXIDIL [Suspect]
     Active Substance: MINOXIDIL
     Dosage: 5 MILLIGRAM, BID
     Route: 065

REACTIONS (4)
  - Pericardial effusion [Recovered/Resolved]
  - Cardiac tamponade [Recovering/Resolving]
  - Treatment noncompliance [Unknown]
  - Hypertensive emergency [Unknown]
